FAERS Safety Report 22924584 (Version 3)
Quarter: 2024Q2

REPORT INFORMATION
  Report Type: Spontaneous
  Country: JP (occurrence: JP)
  Receive Date: 20230908
  Receipt Date: 20240403
  Transmission Date: 20240717
  Serious: Yes (Other)
  Sender: FDA-Public Use
  Company Number: JP-SAKK-2023SA270543AA

PATIENT
  Age: 22 Month
  Sex: Female
  Weight: 10.7 kg

DRUGS (13)
  1. SABRIL [Suspect]
     Active Substance: VIGABATRIN
     Indication: Infantile spasms
     Dosage: 350 MG, BID
     Route: 048
     Dates: start: 20220202, end: 20230302
  2. SABRIL [Suspect]
     Active Substance: VIGABATRIN
     Dosage: 350 MG, QD
     Route: 048
     Dates: start: 20230303, end: 20230310
  3. SABRIL [Suspect]
     Active Substance: VIGABATRIN
     Dosage: 100 MG, BID
     Route: 048
     Dates: start: 20211210, end: 20211223
  4. SABRIL [Suspect]
     Active Substance: VIGABATRIN
     Dosage: 200 MG, BID
     Route: 048
     Dates: start: 20211224, end: 20220104
  5. SABRIL [Suspect]
     Active Substance: VIGABATRIN
     Dosage: 300 MG, BID
     Route: 048
     Dates: start: 20220105, end: 20220201
  6. VALPROATE SODIUM [Concomitant]
     Active Substance: VALPROATE SODIUM
     Indication: Infantile spasms
     Dosage: DAILY DOSE: 4 ML
     Route: 048
  7. ZONISAMIDE [Concomitant]
     Active Substance: ZONISAMIDE
     Indication: Infantile spasms
     Dosage: DAILY DOSE: 10.8 MG
     Route: 048
     Dates: end: 20220607
  8. LEVOCARNITINE [Concomitant]
     Active Substance: LEVOCARNITINE
     Indication: Product used for unknown indication
     Dosage: DAILY DOSE: 2 ML
     Route: 048
  9. MAGNESIUM OXIDE [Concomitant]
     Active Substance: MAGNESIUM OXIDE
     Indication: Product used for unknown indication
     Dosage: DAILY DOSE: 0.4 G
     Route: 048
  10. MELATOBEL [Concomitant]
     Indication: Product used for unknown indication
     Dosage: DAILY DOSE: 2 MG
     Route: 048
     Dates: start: 20220525, end: 20230202
  11. MELATOBEL [Concomitant]
     Dosage: DAILY DOSE: 3 MG
     Route: 048
     Dates: start: 20230203, end: 20230227
  12. MELATOBEL [Concomitant]
     Dosage: DAILY DOSE: 4 MG
     Route: 048
     Dates: start: 20230228
  13. GLYCERIN [Concomitant]
     Active Substance: GLYCERIN
     Indication: Product used for unknown indication
     Dosage: DAILY DOSE: 30 ML, PRN
     Route: 054

REACTIONS (1)
  - Retinal degeneration [Not Recovered/Not Resolved]

NARRATIVE: CASE EVENT DATE: 20220621
